FAERS Safety Report 9725152 (Version 2)
Quarter: 2013Q4

REPORT INFORMATION
  Report Type: Report from Study
  Country: ZA (occurrence: ZA)
  Receive Date: 20131203
  Receipt Date: 20131203
  Transmission Date: 20140711
  Serious: Yes (Death, Hospitalization)
  Sender: FDA-Public Use
  Company Number: ZA-ROCHE-1098383

PATIENT
  Age: 34 Year
  Sex: Female
  Weight: 53 kg

DRUGS (8)
  1. MIRCERA [Suspect]
     Indication: NEPHROGENIC ANAEMIA
     Route: 058
     Dates: start: 20100531
  2. MIRCERA [Suspect]
     Route: 058
     Dates: start: 2011
  3. MIRCERA [Suspect]
     Route: 058
     Dates: start: 201004
  4. MIRCERA [Suspect]
     Route: 058
     Dates: start: 201007
  5. MIRCERA [Suspect]
     Route: 058
     Dates: start: 201010
  6. MIRCERA [Suspect]
     Route: 058
     Dates: start: 201107
  7. MIRCERA [Suspect]
     Route: 058
     Dates: start: 201108
  8. INSULIN [Concomitant]

REACTIONS (7)
  - Multi-organ failure [Fatal]
  - Transfusion [Unknown]
  - Catheter placement [Unknown]
  - Viral myocarditis [Unknown]
  - Myocardial calcification [Unknown]
  - Cardiac failure [Unknown]
  - Cerebrovascular accident [Unknown]
